FAERS Safety Report 7584696-1 (Version None)
Quarter: 2011Q2

REPORT INFORMATION
  Report Type: 
  Country: None (occurrence: None)
  Receive Date: 20110630
  Receipt Date: 20110617
  Transmission Date: 20111010
  Serious: Yes (Hospitalization, Other)
  Sender: FDA-Public Use
  Company Number: PHHY2011US54466

PATIENT
  Sex: Female

DRUGS (1)
  1. RECLAST [Suspect]
     Dosage: 5 MG ONCE YEARLY
     Route: 042
     Dates: start: 20110301

REACTIONS (10)
  - BLOOD LACTATE DEHYDROGENASE DECREASED [None]
  - WEIGHT DECREASED [None]
  - BONE PAIN [None]
  - NAUSEA [None]
  - VOMITING [None]
  - BLOOD ALKALINE PHOSPHATASE INCREASED [None]
  - GASTROINTESTINAL DISORDER [None]
  - PLATELET COUNT DECREASED [None]
  - ANAEMIA [None]
  - ABDOMINAL PAIN [None]
